FAERS Safety Report 10784776 (Version 1)
Quarter: 2015Q1

REPORT INFORMATION
  Report Type: Spontaneous
  Country: US (occurrence: US)
  Receive Date: 20150211
  Receipt Date: 20150211
  Transmission Date: 20150721
  Serious: No
  Sender: FDA-Public Use
  Company Number: US-GLAXOSMITHKLINE-A1076573A

PATIENT

DRUGS (8)
  1. MIRALAX [Concomitant]
     Active Substance: POLYETHYLENE GLYCOL 3350
  2. IRON [Concomitant]
     Active Substance: IRON
  3. ZEMPLAR [Concomitant]
     Active Substance: PARICALCITOL
  4. CITALOPRAM [Concomitant]
     Active Substance: CITALOPRAM HYDROBROMIDE
  5. VITAMIN B12 [Concomitant]
     Active Substance: CYANOCOBALAMIN
  6. ASPIRIN. [Concomitant]
     Active Substance: ASPIRIN
  7. LAMICTAL [Suspect]
     Active Substance: LAMOTRIGINE
     Indication: SEIZURE
     Dosage: MAY HAVE BEEN 200 MG DAILY AND THEN SWITCHED TO DIVIDED DOSE.  REPORTER UNSURE.
     Route: 048
  8. UNKNOWN VITAMINS [Concomitant]

REACTIONS (2)
  - Drug ineffective [Unknown]
  - Aphasia [Not Recovered/Not Resolved]
